FAERS Safety Report 19662223 (Version 14)
Quarter: 2022Q3

REPORT INFORMATION
  Report Type: Spontaneous
  Country: JP (occurrence: JP)
  Receive Date: 20210805
  Receipt Date: 20220806
  Transmission Date: 20221027
  Serious: Yes (Death, Hospitalization, Other)
  Sender: FDA-Public Use
  Company Number: JP-JNJFOC-20210802854

PATIENT
  Age: 75 Year
  Sex: Male

DRUGS (16)
  1. OPSUMIT [Suspect]
     Active Substance: MACITENTAN
     Indication: Pulmonary arterial hypertension
     Route: 048
     Dates: end: 20211128
  2. OPSUMIT [Suspect]
     Active Substance: MACITENTAN
     Indication: Pulmonary hypertension
  3. UPTRAVI [Suspect]
     Active Substance: SELEXIPAG
     Indication: Pulmonary arterial hypertension
     Route: 048
  4. UPTRAVI [Suspect]
     Active Substance: SELEXIPAG
     Indication: Pulmonary hypertension
     Route: 048
     Dates: start: 20191023, end: 20211128
  5. ADCIRCA [Suspect]
     Active Substance: TADALAFIL
     Indication: Pulmonary arterial hypertension
     Route: 048
  6. ADCIRCA [Suspect]
     Active Substance: TADALAFIL
     Indication: Pulmonary hypertension
  7. PROCATEROL HYDROCHLORIDE [Concomitant]
     Active Substance: PROCATEROL HYDROCHLORIDE
  8. TIOTROPIUM [Concomitant]
     Active Substance: TIOTROPIUM
  9. FLUTICASONE [Concomitant]
     Active Substance: FLUTICASONE
  10. APIXABAN [Concomitant]
     Active Substance: APIXABAN
  11. TELMISARTAN [Concomitant]
     Active Substance: TELMISARTAN
  12. AMLODIPINE [Concomitant]
     Active Substance: AMLODIPINE BESYLATE
  13. FUROSEMIDE [Concomitant]
     Active Substance: FUROSEMIDE
  14. FEBUXOSTAT [Concomitant]
     Active Substance: FEBUXOSTAT
  15. NIFEDIPINE [Concomitant]
     Active Substance: NIFEDIPINE
  16. MOKUBOITO [Concomitant]

REACTIONS (7)
  - Right ventricular failure [Fatal]
  - Pulmonary arterial hypertension [Fatal]
  - Colon cancer [Fatal]
  - Cardiac failure congestive [Recovering/Resolving]
  - Ascites [Recovered/Resolved]
  - Post procedural haemorrhage [Recovered/Resolved]
  - Therapeutic product effect incomplete [Unknown]

NARRATIVE: CASE EVENT DATE: 20210701
